FAERS Safety Report 5165516-1 (Version None)
Quarter: 2006Q4

REPORT INFORMATION
  Report Type: 
  Country: None (occurrence: None)
  Receive Date: 20061128
  Receipt Date: 20061124
  Transmission Date: 20070319
  Serious: Yes (Other)
  Sender: FDA-Public Use
  Company Number: 30561

PATIENT
  Age: 59 Year
  Sex: Female

DRUGS (1)
  1. IMIQUIMOD [Suspect]
     Indication: BASAL CELL CARCINOMA
     Dosage: TOPICAL
     Route: 061

REACTIONS (6)
  - APPLICATION SITE BLEEDING [None]
  - BLOOD IMMUNOGLOBULIN G INCREASED [None]
  - ERYTHEMA [None]
  - HERPES SIMPLEX [None]
  - PAIN [None]
  - RASH PAPULAR [None]
